FAERS Safety Report 4659335-X (Version None)
Quarter: 2005Q2

REPORT INFORMATION
  Report Type: 
  Country: None (occurrence: None)
  Receive Date: 20050502
  Receipt Date: 20050118
  Transmission Date: 20051028
  Serious: No
  Sender: FDA-Public Use
  Company Number: 200418924US

PATIENT
  Age: 38 Year
  Sex: Female
  Weight: 60.5 kg

DRUGS (2)
  1. KETEK [Suspect]
     Indication: SINUSITIS
     Dosage: 400 (2 TABLETS) MG QD PO
     Route: 048
     Dates: start: 20041005, end: 20041008
  2. THIAMAZOLE (TAPAZOLE) [Concomitant]

REACTIONS (8)
  - DELIRIUM [None]
  - DIPLOPIA [None]
  - DISORIENTATION [None]
  - DIZZINESS [None]
  - OPHTHALMOLOGICAL EXAMINATION ABNORMAL [None]
  - PALPITATIONS [None]
  - VISION BLURRED [None]
  - VISUAL DISTURBANCE [None]
